FAERS Safety Report 9410433 (Version 1)
Quarter: 2013Q3

REPORT INFORMATION
  Report Type: Spontaneous
  Country: JP (occurrence: JP)
  Receive Date: 20130719
  Receipt Date: 20130719
  Transmission Date: 20140515
  Serious: Yes (Other)
  Sender: FDA-Public Use
  Company Number: JP-GLAXOSMITHKLINE-B0908559A

PATIENT
  Sex: 0

DRUGS (1)
  1. SERETIDE [Suspect]
     Indication: ASTHMA
     Route: 055
     Dates: start: 201210

REACTIONS (2)
  - Oral mucosal discolouration [Not Recovered/Not Resolved]
  - Candida infection [Not Recovered/Not Resolved]
